FAERS Safety Report 10238949 (Version 4)
Quarter: 2014Q3

REPORT INFORMATION
  Report Type: Spontaneous
  Country: US (occurrence: US)
  Receive Date: 20140616
  Receipt Date: 20140804
  Transmission Date: 20150326
  Serious: Yes (Other)
  Sender: FDA-Public Use
  Company Number: US-TEVA-488420USA

PATIENT
  Age: 39 Year
  Sex: Female
  Weight: 57.2 kg

DRUGS (1)
  1. PARAGARD T380A [Suspect]
     Active Substance: COPPER
     Indication: CONTRACEPTION
     Route: 015
     Dates: start: 20070417, end: 20140414

REACTIONS (5)
  - Menorrhagia [Unknown]
  - Embedded device [Recovered/Resolved]
  - Metrorrhagia [Unknown]
  - Device breakage [Recovered/Resolved]
  - Device expulsion [Recovered/Resolved]

NARRATIVE: CASE EVENT DATE: 20140417
